FAERS Safety Report 15739512 (Version 1)
Quarter: 2018Q4

REPORT INFORMATION
  Report Type: Spontaneous
  Country: US (occurrence: US)
  Receive Date: 20181219
  Receipt Date: 20181219
  Transmission Date: 20190205
  Serious: No
  Sender: FDA-Public Use
  Company Number: US-ALLERGAN-1824602US

PATIENT
  Age: 2 Year
  Sex: Female
  Weight: 13.61 kg

DRUGS (1)
  1. BYSTOLIC [Suspect]
     Active Substance: NEBIVOLOL HYDROCHLORIDE
     Indication: ACCIDENTAL EXPOSURE TO PRODUCT BY CHILD
     Dosage: 20 MG, UNK
     Route: 048
     Dates: start: 20180503, end: 20180503

REACTIONS (1)
  - Accidental exposure to product by child [Unknown]
